FAERS Safety Report 7751025-X (Version None)
Quarter: 2011Q3

REPORT INFORMATION
  Report Type: 
  Country: None (occurrence: None)
  Receive Date: 20110912
  Receipt Date: 20110907
  Transmission Date: 20111222
  Serious: Yes (Life-Threatening, Hospitalization, Other)
  Sender: FDA-Public Use
  Company Number: 201110054

PATIENT
  Age: 47 Year
  Sex: Female

DRUGS (4)
  1. BUPIVICAINE [Concomitant]
  2. LIORESAL [Suspect]
     Indication: MUSCLE SPASTICITY
     Dosage: 693.75 MCG, DAILY, INTRATHECAL
     Route: 037
  3. HYDROMORPHONE [Concomitant]
  4. FENTANYL [Concomitant]

REACTIONS (4)
  - UNDERDOSE [None]
  - NO THERAPEUTIC RESPONSE [None]
  - INCISION SITE INFECTION [None]
  - INCISION SITE COMPLICATION [None]
